FAERS Safety Report 13903625 (Version 1)
Quarter: 2017Q3

REPORT INFORMATION
  Report Type: Spontaneous
  Country: FR (occurrence: FR)
  Receive Date: 20170824
  Receipt Date: 20170824
  Transmission Date: 20171127
  Serious: Yes (Hospitalization, Disabling)
  Sender: FDA-Public Use
  Company Number: FR-ACCORD-057588

PATIENT
  Age: 62 Year
  Sex: Male

DRUGS (4)
  1. ALIMTA [Suspect]
     Active Substance: PEMETREXED DISODIUM
     Indication: LUNG NEOPLASM MALIGNANT
     Dosage: STRENGTH: 500 MG
     Route: 042
     Dates: start: 20170525
  2. CYANOCOBALAMIN. [Concomitant]
     Active Substance: CYANOCOBALAMIN
  3. CISPLATIN ACCORD [Suspect]
     Active Substance: CISPLATIN
     Indication: LUNG NEOPLASM MALIGNANT
     Dosage: STRENGTH: 1 MG/ML, IN A SINGLE ADMINISTRATION
     Route: 042
     Dates: start: 20170525
  4. SPECIAFOLDINE [Concomitant]
     Active Substance: FOLIC ACID

REACTIONS (6)
  - Aphasia [Recovering/Resolving]
  - Ischaemic stroke [Recovering/Resolving]
  - Visual field defect [Unknown]
  - Hemiplegia [Recovering/Resolving]
  - Fall [Unknown]
  - Hemianopia [Unknown]

NARRATIVE: CASE EVENT DATE: 20170528
